FAERS Safety Report 17495032 (Version 2)
Quarter: 2021Q1

REPORT INFORMATION
  Report Type: Spontaneous
  Country: US (occurrence: US)
  Receive Date: 20200303
  Receipt Date: 20210303
  Transmission Date: 20210419
  Serious: No
  Sender: FDA-Public Use
  Company Number: US-AMNEAL PHARMACEUTICALS-2019-AMRX-01867

PATIENT
  Age: 83 Year
  Sex: Male
  Weight: 90 kg

DRUGS (5)
  1. RYTARY [Suspect]
     Active Substance: CARBIDOPA\LEVODOPA
     Dosage: 23.75?95 MG, 3 CAPSULES, TID
     Route: 048
     Dates: end: 20190909
  2. RYTARY [Suspect]
     Active Substance: CARBIDOPA\LEVODOPA
     Dosage: 36.25?145 MG, 3 CAPSULES, TID
     Route: 048
     Dates: start: 20190909, end: 201909
  3. RYTARY [Suspect]
     Active Substance: CARBIDOPA\LEVODOPA
     Dosage: 23.75?95 MG, 4 CAPSULES, TID
     Route: 048
     Dates: start: 201909
  4. RYTARY [Suspect]
     Active Substance: CARBIDOPA\LEVODOPA
     Indication: PARKINSON^S DISEASE
     Dosage: 23.75?95 MG, 5 CAPSULES, TID
     Route: 048
  5. RYTARY [Suspect]
     Active Substance: CARBIDOPA\LEVODOPA
     Dosage: 23.75/95 MG, 3 CAPSULES, TID
     Route: 048

REACTIONS (4)
  - Balance disorder [Unknown]
  - Insomnia [Recovered/Resolved]
  - Dizziness [Unknown]
  - Dyskinesia [Recovered/Resolved]

NARRATIVE: CASE EVENT DATE: 201909
